FAERS Safety Report 22362318 (Version 1)
Quarter: 2023Q2

REPORT INFORMATION
  Report Type: Spontaneous
  Country: CA (occurrence: CA)
  Receive Date: 20230524
  Receipt Date: 20230524
  Transmission Date: 20230721
  Serious: Yes (Other)
  Sender: FDA-Public Use
  Company Number: CA-PFIZER INC-202300199977

PATIENT
  Age: 72 Year
  Sex: Female

DRUGS (4)
  1. METHOTREXATE SODIUM [Suspect]
     Active Substance: METHOTREXATE SODIUM
     Dosage: UNK
  2. RITUXIMAB [Concomitant]
     Active Substance: RITUXIMAB
     Indication: Autoimmune myositis
     Dosage: 1000 MG, CYCLIC (DAY 1 AND DAY 15)
     Route: 042
     Dates: start: 20220607, end: 20220621
  3. RITUXIMAB [Concomitant]
     Active Substance: RITUXIMAB
     Dosage: 1000 MG, CYCLIC (DAY 1 AND DAY 15)
     Route: 042
     Dates: start: 20230106
  4. RITUXIMAB [Concomitant]
     Active Substance: RITUXIMAB
     Dosage: 1000 MG, CYCLIC (DAY 1 AND DAY 15)
     Route: 042
     Dates: start: 20230120

REACTIONS (3)
  - Condition aggravated [Not Recovered/Not Resolved]
  - Blood creatine phosphokinase increased [Not Recovered/Not Resolved]
  - Muscular weakness [Not Recovered/Not Resolved]
